FAERS Safety Report 16632962 (Version 3)
Quarter: 2019Q3

REPORT INFORMATION
  Report Type: Spontaneous
  Country: US (occurrence: US)
  Receive Date: 20190725
  Receipt Date: 20190905
  Transmission Date: 20191004
  Serious: No
  Sender: FDA-Public Use
  Company Number: US-PFIZER INC-2019317442

PATIENT
  Age: 78 Year
  Sex: Male
  Weight: 107 kg

DRUGS (1)
  1. LYRICA [Suspect]
     Active Substance: PREGABALIN
     Indication: HERPES ZOSTER
     Dosage: 150 MG, 3X/DAY
     Dates: start: 2019

REACTIONS (5)
  - Peripheral swelling [Unknown]
  - Swelling [Unknown]
  - Swelling face [Unknown]
  - Drug ineffective [Unknown]
  - Eye swelling [Unknown]
